FAERS Safety Report 5007372-8 (Version None)
Quarter: 2006Q2

REPORT INFORMATION
  Report Type: 
  Country: None (occurrence: None)
  Receive Date: 20060517
  Receipt Date: 20060428
  Transmission Date: 20061013
  Serious: No
  Sender: FDA-Public Use
  Company Number: US200603003991

PATIENT
  Age: 67 Year
  Sex: Female

DRUGS (3)
  1. FORTEO [Suspect]
     Indication: OSTEOPOROSIS
     Dates: start: 20050401
  2. FORTEO [Concomitant]
  3. FORTEO [Concomitant]

REACTIONS (1)
  - BLOOD CALCIUM INCREASED [None]
